FAERS Safety Report 4643040-X (Version None)
Quarter: 2005Q2

REPORT INFORMATION
  Report Type: 
  Country: None (occurrence: None)
  Receive Date: 20050421
  Receipt Date: 20050407
  Transmission Date: 20051028
  Serious: Yes (Disabling)
  Sender: FDA-Public Use
  Company Number: CEL-2005-00482-SLO

PATIENT
  Sex: Male

DRUGS (4)
  1. DIPENTUM [Suspect]
     Indication: COLITIS ULCERATIVE
     Dosage: 500MG, BID
  2. DIPENTUM [Suspect]
     Indication: PROPHYLAXIS
     Dosage: 500MG, BID
  3. AMIODARONE (AMIODARONE HYDROCHLORIDE) [Concomitant]
  4. WARFARIN SODIUM [Concomitant]

REACTIONS (3)
  - ARTHRALGIA [None]
  - BEDRIDDEN [None]
  - BONE PAIN [None]
